FAERS Safety Report 11580355 (Version 1)
Quarter: 2015Q3

REPORT INFORMATION
  Report Type: Spontaneous
  Country: US (occurrence: US)
  Receive Date: 20150916
  Receipt Date: 20150916
  Transmission Date: 20151125
  Serious: Yes (Other)
  Sender: FDA-Public Use
  Company Number: US-ELI_LILLY_AND_COMPANY-US200804004286

PATIENT
  Age: 59 Year
  Sex: Female

DRUGS (1)
  1. FORTEO [Suspect]
     Active Substance: TERIPARATIDE
     Dosage: UNK, UNK
     Dates: start: 20080416

REACTIONS (7)
  - Sinus tachycardia [Unknown]
  - Flushing [Unknown]
  - Back pain [Unknown]
  - Chest pain [Unknown]
  - Blood pressure increased [Unknown]
  - Feeling hot [Unknown]
  - Tremor [Unknown]

NARRATIVE: CASE EVENT DATE: 20080416
